FAERS Safety Report 7270681-6 (Version None)
Quarter: 2011Q1

REPORT INFORMATION
  Report Type: 
  Country: None (occurrence: None)
  Receive Date: 20110202
  Receipt Date: 20110126
  Transmission Date: 20110831
  Serious: Yes (Other)
  Sender: FDA-Public Use
  Company Number: B0667745A

PATIENT
  Sex: Female

DRUGS (3)
  1. LENDORMIN [Concomitant]
     Indication: INSOMNIA
     Dosage: .25MG PER DAY
     Route: 048
     Dates: start: 20061210
  2. PAXIL [Suspect]
     Indication: ANXIETY
     Dosage: 10MG PER DAY
     Route: 048
     Dates: start: 20061210, end: 20061215
  3. DEPROMEL [Concomitant]
     Indication: ANXIETY
     Dosage: 75MG PER DAY
     Route: 048
     Dates: start: 20061024

REACTIONS (3)
  - ANXIETY [None]
  - ACTIVATION SYNDROME [None]
  - INTENTIONAL SELF-INJURY [None]
